FAERS Safety Report 10456650 (Version 1)
Quarter: 2014Q3

REPORT INFORMATION
  Report Type: Spontaneous
  Country: CH (occurrence: CH)
  Receive Date: 20140916
  Receipt Date: 20140916
  Transmission Date: 20150326
  Serious: Yes (Other)
  Sender: FDA-Public Use
  Company Number: PHHY2014CH115569

PATIENT
  Sex: Female

DRUGS (3)
  1. GILENYA [Suspect]
     Active Substance: FINGOLIMOD HYDROCHLORIDE
     Dosage: 1 DF, QD
     Dates: start: 2011
  2. GILENYA [Suspect]
     Active Substance: FINGOLIMOD HYDROCHLORIDE
     Dosage: 1 DF, QOD
     Dates: start: 2012
  3. ELTROXIN [Concomitant]
     Active Substance: LEVOTHYROXINE

REACTIONS (3)
  - Prescribed underdose [Unknown]
  - Lymphopenia [Unknown]
  - Intraductal proliferative breast lesion [Recovering/Resolving]

NARRATIVE: CASE EVENT DATE: 2012
